FAERS Safety Report 6255665-9 (Version None)
Quarter: 2009Q3

REPORT INFORMATION
  Report Type: 
  Country: None (occurrence: None)
  Receive Date: 20090701
  Receipt Date: 20090619
  Transmission Date: 20100115
  Serious: Yes (Hospitalization)
  Sender: FDA-Public Use
  Company Number: 2009SP012372

PATIENT
  Age: 56 Year
  Sex: Male
  Weight: 107.9561 kg

DRUGS (7)
  1. BOCEPREVIR [Suspect]
     Indication: HEPATITIS C
     Dosage: 2400 MG; QD; PO
     Route: 048
     Dates: start: 20081210, end: 20090530
  2. PEG-INTRON [Suspect]
     Indication: HEPATITIS C
     Dosage: 150 MCG; QW; SC
     Route: 058
     Dates: start: 20081112, end: 20090530
  3. RIBAVIRIN [Suspect]
     Indication: HEPATITIS C
     Dosage: 1400 MG; QD; PO, 800 MG; QD; PO
     Route: 048
     Dates: end: 20090530
  4. RIBAVIRIN [Suspect]
     Indication: HEPATITIS C
     Dosage: 1400 MG; QD; PO, 800 MG; QD; PO
     Route: 048
     Dates: start: 20081112
  5. LEXAPRO [Concomitant]
  6. XANAX [Concomitant]
  7. PROCRIT [Concomitant]

REACTIONS (2)
  - HYPERGLYCAEMIA [None]
  - PANCREATITIS NECROTISING [None]
